FAERS Safety Report 9527757 (Version 3)
Quarter: 2013Q4

REPORT INFORMATION
  Report Type: Spontaneous
  Country: US (occurrence: None)
  Receive Date: 20130913
  Receipt Date: 20131030
  Transmission Date: 20140711
  Serious: Yes (Other)
  Sender: FDA-Public Use
  Company Number: ACO_38316_2013

PATIENT
  Age: 53 Year
  Sex: Male

DRUGS (10)
  1. AMPYRA [Suspect]
     Indication: PRODUCT USED FOR UNKNOWN INDICATION
     Route: 048
     Dates: start: 20130712, end: 20130901
  2. AMPYRA [Suspect]
     Indication: PRODUCT USED FOR UNKNOWN INDICATION
     Route: 048
     Dates: start: 20130712, end: 20130901
  3. AMANTADINE (AMANTADINE) [Concomitant]
  4. FLOMAX (TAMSULOSIN HYDROCHLORIDE) [Concomitant]
  5. VITAMIN D (ERGOCALCIFEROL) [Concomitant]
  6. REBIF (INTERFERON BETA-1A) [Concomitant]
  7. ALEVE  (NAPROXEN  SODIUM) [Concomitant]
  8. TRIAMTERENE AND KYDROCHLOROTHIAZIDE (HYDROCHLOROTHIAZIDE, TRIAMTERENE) [Concomitant]
  9. AMLODIPINE BESYLATE (AMLODIPINE BESYLATE) [Concomitant]
  10. COG10 (UBIDECARENONE) [Concomitant]

REACTIONS (2)
  - Convulsion [None]
  - Multiple sclerosis relapse [None]
